FAERS Safety Report 14181866 (Version 1)
Quarter: 2017Q4

REPORT INFORMATION
  Report Type: Report from Study
  Country: None (occurrence: BR)
  Receive Date: 20171113
  Receipt Date: 20171113
  Transmission Date: 20180321
  Serious: Yes (Other)
  Sender: FDA-Public Use
  Company Number: BR-ABBVIE-17K-020-2156519-00

PATIENT
  Age: 62 Year
  Sex: Female
  Weight: 66 kg

DRUGS (1)
  1. HUMIRA [Suspect]
     Active Substance: ADALIMUMAB
     Indication: RHEUMATOID ARTHRITIS
     Route: 058
     Dates: start: 20160505, end: 20171022

REACTIONS (7)
  - Lung disorder [Unknown]
  - Back pain [Recovered/Resolved]
  - Bedridden [Recovered/Resolved]
  - Cough [Recovered/Resolved]
  - Alopecia [Recovering/Resolving]
  - Gastric disorder [Unknown]
  - Insomnia [Recovering/Resolving]

NARRATIVE: CASE EVENT DATE: 2017
